FAERS Safety Report 24568203 (Version 1)
Quarter: 2024Q4

REPORT INFORMATION
  Report Type: Report from Study
  Country: US (occurrence: US)
  Receive Date: 20241031
  Receipt Date: 20241031
  Transmission Date: 20250114
  Serious: Yes (Other)
  Sender: ALEXION PHARMACEUTICALS
  Company Number: US-AstraZeneca-CH-00732505A

PATIENT

DRUGS (1)
  1. OSIMERTINIB [Suspect]
     Active Substance: OSIMERTINIB

REACTIONS (1)
  - Disease progression [Unknown]
